FAERS Safety Report 7768478-3 (Version None)
Quarter: 2011Q3

REPORT INFORMATION
  Report Type: 
  Country: None (occurrence: None)
  Receive Date: 20110922
  Receipt Date: 20100311
  Transmission Date: 20111222
  Serious: No
  Sender: FDA-Public Use
  Company Number: US-ASTRAZENECA-2009UW20469

PATIENT
  Age: 482 Month
  Sex: Female
  Weight: 112.5 kg

DRUGS (11)
  1. TIAZAC [Concomitant]
     Dates: start: 20010101
  2. SEROQUEL [Suspect]
     Indication: SCHIZOAFFECTIVE DISORDER
     Dosage: 50MG- 300MG ONE PER DAY
     Route: 048
     Dates: start: 20010601, end: 20060117
  3. TRAZODONE HYDROCHLORIDE [Concomitant]
     Route: 048
  4. TRAZODONE HYDROCHLORIDE [Concomitant]
     Dosage: 100 MG TWO QHS
     Route: 048
     Dates: start: 20010601
  5. CLONIDINE [Concomitant]
  6. HYDROCHLOROTHIAZIDE [Concomitant]
     Dates: start: 20010101
  7. SEROQUEL [Suspect]
     Indication: BIPOLAR DISORDER
     Dosage: 50MG- 300MG ONE PER DAY
     Route: 048
     Dates: start: 20010601, end: 20060117
  8. ZYRTEC [Concomitant]
     Dates: start: 20010101
  9. PAXIL [Concomitant]
     Route: 048
     Dates: start: 20010101, end: 20070101
  10. ABILIFY [Concomitant]
     Dates: start: 20080101
  11. PAXIL [Concomitant]
     Route: 048
     Dates: start: 20010601

REACTIONS (7)
  - WEIGHT INCREASED [None]
  - ASTHMA [None]
  - TYPE 2 DIABETES MELLITUS [None]
  - SOMNOLENCE [None]
  - BLOOD TRIGLYCERIDES INCREASED [None]
  - BLOOD CHOLESTEROL INCREASED [None]
  - OBESITY [None]
